FAERS Safety Report 16468746 (Version 1)
Quarter: 2019Q2

REPORT INFORMATION
  Report Type: Spontaneous
  Country: US (occurrence: US)
  Receive Date: 20190624
  Receipt Date: 20190624
  Transmission Date: 20190711
  Serious: No
  Sender: FDA-Public Use
  Company Number: US-ASTRAZENECA-2019SE87276

PATIENT
  Sex: Female

DRUGS (2)
  1. BYDUREON BCISE [Suspect]
     Active Substance: EXENATIDE
     Route: 065
     Dates: start: 20190527
  2. VICTOZA [Concomitant]
     Active Substance: LIRAGLUTIDE
     Dosage: EVERY DAY

REACTIONS (1)
  - Blood glucose increased [Not Recovered/Not Resolved]
